FAERS Safety Report 6494758-8 (Version None)
Quarter: 2009Q4

REPORT INFORMATION
  Report Type: 
  Country: None (occurrence: None)
  Receive Date: 20091214
  Receipt Date: 20090323
  Transmission Date: 20100525
  Serious: No
  Sender: FDA-Public Use
  Company Number: US-BRISTOL-MYERS SQUIBB COMPANY-14556427

PATIENT
  Age: 55 Year
  Sex: Male
  Weight: 91 kg

DRUGS (2)
  1. ABILIFY [Suspect]
     Dosage: 11MAR09, DOSE INCREASED TO 5MG DAILY
     Dates: start: 20090210, end: 20090317
  2. EFFEXOR [Concomitant]

REACTIONS (2)
  - PAIN [None]
  - PYREXIA [None]
